FAERS Safety Report 8983228 (Version 1)
Quarter: 2012Q4

REPORT INFORMATION
  Report Type: 
  Country: US (occurrence: US)
  Receive Date: 20121224
  Receipt Date: 20121224
  Transmission Date: 20130627
  Serious: Yes (Hospitalization, Other)
  Sender: FDA-Public Use
  Company Number: PHEH2012US024889

PATIENT
  Sex: Female

DRUGS (1)
  1. EXJADE [Suspect]
     Indication: MAGNESIUM METABOLISM DISORDER
     Route: 048
     Dates: start: 20120705

REACTIONS (2)
  - Back injury [Unknown]
  - Fall [Unknown]
